FAERS Safety Report 24445386 (Version 1)
Quarter: 2024Q4

REPORT INFORMATION
  Report Type: Spontaneous
  Country: US (occurrence: US)
  Receive Date: 20241016
  Receipt Date: 20241016
  Transmission Date: 20250115
  Serious: No
  Sender: SANDOZ
  Company Number: US-SANDOZ-SDZ2024US031406

PATIENT
  Age: 55 Year
  Sex: Female

DRUGS (3)
  1. COMBIPATCH [Suspect]
     Active Substance: ESTRADIOL\NORETHINDRONE ACETATE
     Dosage: 0.05/0.25 MG
     Route: 062
     Dates: start: 20240316
  2. COMBIPATCH [Suspect]
     Active Substance: ESTRADIOL\NORETHINDRONE ACETATE
     Indication: Menopause
     Dosage: 0.05/0.14 MG
     Route: 062
  3. COMBIPATCH [Suspect]
     Active Substance: ESTRADIOL\NORETHINDRONE ACETATE
     Dosage: 0.05/0.25 MG
     Route: 062
     Dates: start: 20240316

REACTIONS (4)
  - Intermenstrual bleeding [Unknown]
  - Product residue present [Recovered/Resolved]
  - Product physical issue [Unknown]
  - Product adhesion issue [Unknown]

NARRATIVE: CASE EVENT DATE: 20240201
